FAERS Safety Report 5096691-5 (Version None)
Quarter: 2006Q3

REPORT INFORMATION
  Report Type: 
  Country: None (occurrence: None)
  Receive Date: 20060831
  Receipt Date: 20060818
  Transmission Date: 20061208
  Serious: Yes (Other)
  Sender: FDA-Public Use
  Company Number: 2006-BP-09687RO

PATIENT
  Age: 52 Year
  Sex: Female
  Weight: 65 kg

DRUGS (29)
  1. PROPRANOLOL [Suspect]
     Indication: HYPERTENSION
     Dosage: 30 MG DAILY, PO
     Route: 048
     Dates: start: 19970601, end: 20041001
  2. ASPIRIN [Suspect]
     Dosage: 100 MG
     Dates: end: 20040901
  3. CANDESARTAN (CANDESARTAN) [Suspect]
     Dates: end: 20040404
  4. CLOMIPRAMINE HCL [Suspect]
     Dosage: 12.5 TO 75 MG/DAY
     Dates: start: 19890101, end: 20040601
  5. CORTICOSTEROIDS (CORTICOSTEROIDS) [Suspect]
     Dates: start: 20030601, end: 20040401
  6. PAROXETINE [Suspect]
     Dosage: 20 MG
     Dates: start: 20030601, end: 20041001
  7. PRAVASTATIN [Suspect]
     Dosage: 20 MG
     Dates: start: 20030601, end: 20040401
  8. ALLOPURINOL [Concomitant]
  9. ALPRAZOLAM [Concomitant]
  10. AMITRIPTYLINE HCL [Concomitant]
  11. BELLADONNA (ATROPA BELLADONNA EXTRACT) [Concomitant]
  12. BEZAFIBRATE (BEZAFIBRATE) [Concomitant]
  13. BISOPROLOL FUMARATE [Concomitant]
  14. BROMAZEPAM (BROMAZEPAM) [Concomitant]
  15. BUDESONIDE [Concomitant]
  16. CELECOXIB (CELECOXIB) [Concomitant]
  17. CERIVASTATIN (CERIVASTATIN) [Concomitant]
  18. CHLOROQUINE (CHLOROQUINE) [Concomitant]
  19. CLOPIDOGREL [Concomitant]
  20. CHOLESTYRAMINE (COLESTYRAMINE) [Concomitant]
  21. DIOSMIN (DIOSMIN) [Concomitant]
  22. ESCITALOPRAM OXALATE [Concomitant]
  23. ENALAPRIL MALEATE [Concomitant]
  24. FLUPENTIXOL (FLUPENTIXOL) [Concomitant]
  25. LANSOPRAZOLE [Concomitant]
  26. ROSUVASTATIN (ROSUVASTATIN) [Concomitant]
  27. SIMVASTATIN [Concomitant]
  28. TIOTROPIUM BROMIDE (TIOTROPIUM BROMIDE) [Concomitant]
  29. TRAMADOL HCL [Concomitant]

REACTIONS (40)
  - ARTERITIS OBLITERANS [None]
  - ARTHRALGIA [None]
  - ASTHENIA [None]
  - CACHEXIA [None]
  - CATARACT [None]
  - CONDITION AGGRAVATED [None]
  - DIPLOPIA [None]
  - DRUG INEFFECTIVE [None]
  - DYSARTHRIA [None]
  - DYSPHAGIA [None]
  - EOSINOPHILIA [None]
  - EYELID PTOSIS [None]
  - GAMMA-GLUTAMYLTRANSFERASE INCREASED [None]
  - HERPES ZOSTER [None]
  - HYPERHIDROSIS [None]
  - HYPERLIPIDAEMIA [None]
  - HYPERREFLEXIA [None]
  - HYPERTENSION [None]
  - HYPERURICAEMIA [None]
  - HYPOACUSIS [None]
  - HYPOREFLEXIA [None]
  - JOINT STIFFNESS [None]
  - JOINT SWELLING [None]
  - MACULAR DEGENERATION [None]
  - MITRAL VALVE INCOMPETENCE [None]
  - MUSCLE HYPERTROPHY [None]
  - MUSCLE SPASMS [None]
  - MUSCULOSKELETAL STIFFNESS [None]
  - MYALGIA [None]
  - MYOCARDIAL FIBROSIS [None]
  - MYOPATHY [None]
  - NEPHROLITHIASIS [None]
  - NUCLEAR MAGNETIC RESONANCE IMAGING BRAIN ABNORMAL [None]
  - PERICARDIAL EFFUSION [None]
  - PULMONARY GRANULOMA [None]
  - PYREXIA [None]
  - RED BLOOD CELL SEDIMENTATION RATE INCREASED [None]
  - TACHYCARDIA [None]
  - URETHRAL STENOSIS [None]
  - VISUAL ACUITY REDUCED [None]
